FAERS Safety Report 8170553-9 (Version None)
Quarter: 2012Q1

REPORT INFORMATION
  Report Type: 
  Country: None (occurrence: None)
  Receive Date: 20120228
  Receipt Date: 20120223
  Transmission Date: 20120608
  Serious: Yes (Life-Threatening, Hospitalization)
  Sender: FDA-Public Use
  Company Number: NL-PFIZER INC-2012048914

PATIENT
  Age: 65 Year
  Sex: Female
  Weight: 134 kg

DRUGS (15)
  1. VALSARTAN [Concomitant]
     Dosage: 80 MG, 2X/DAY
  2. DIGOXIN [Concomitant]
     Dosage: 0.25 MG, 1X/DAY
  3. FLUCLOXACILLIN [Suspect]
     Indication: ERYSIPELAS
     Dosage: 500 MG, 3X/DAY
     Dates: start: 20120202, end: 20120204
  4. FUROSEMIDE [Concomitant]
     Dosage: 80 MG, 1X/DAY
  5. VERAPAMIL [Concomitant]
     Dosage: 240 MG, 1X/DAY
  6. NOVORAPID [Concomitant]
     Dosage: 40-20-60 UNITS DAILY
  7. PARACETAMOL [Concomitant]
     Dosage: 4000 MG, AS NEEDED
  8. METFORMIN [Concomitant]
     Dosage: 500 MG, 2X/DAY
  9. PAROXETINE [Concomitant]
     Dosage: 20 MG, 1X/DAY
  10. CLINDAMYCIN HCL [Suspect]
     Indication: ERYSIPELAS
     Dosage: 300 MG, 4X/DAY
     Route: 048
     Dates: start: 20120204, end: 20120210
  11. ACENOCOUMAROL [Concomitant]
     Dosage: 1 MG, UNK
  12. SIMVASTATIN [Concomitant]
     Dosage: 10 MG, 1X/DAY
  13. INSULIN DETEMIR [Concomitant]
     Dosage: 80 UNITS DAILY
  14. SPIRONOLACTONE [Concomitant]
     Dosage: 50 MG, 1X/DAY
  15. LEVOTHYROXINE [Concomitant]
     Dosage: 212.5 UG, 1X/DAY

REACTIONS (2)
  - HAEMODYNAMIC INSTABILITY [None]
  - TOXIC SKIN ERUPTION [None]
